FAERS Safety Report 7505258-8 (Version None)
Quarter: 2011Q2

REPORT INFORMATION
  Report Type: 
  Country: None (occurrence: None)
  Receive Date: 20110518
  Receipt Date: 20100913
  Transmission Date: 20111010
  Serious: Yes (Hospitalization)
  Sender: FDA-Public Use
  Company Number: 2010SP048840

PATIENT
  Age: 29 Year
  Sex: Female

DRUGS (7)
  1. ERYTHROMYCIN [Suspect]
     Indication: INFECTION PROPHYLAXIS
     Dosage: 3 GM, QD
     Dates: start: 20100522
  2. TRACTOCILE (ATOSIBAN) [Suspect]
     Indication: TOCOLYSIS
     Dates: start: 20100524
  3. PHENYLEPHRINE HCL [Suspect]
     Indication: PRODUCT USED FOR UNKNOWN INDICATION
     Dates: start: 20100524
  4. VOLUVEN [Suspect]
     Indication: PRODUCT USED FOR UNKNOWN INDICATION
     Dates: start: 20100524
  5. EPHEDRINE (OTHER MANUFACTURER) (EPHEDRINE0 [Suspect]
     Indication: PRODUCT USED FOR UNKNOWN INDICATION
     Dates: start: 20100524
  6. ADALAT [Suspect]
     Indication: TOCOLYSIS
     Dosage: 1 DF, QD, PO
     Route: 048
     Dates: start: 20100524
  7. CELESTONE [Suspect]
     Indication: PRODUCT USED FOR UNKNOWN INDICATION
     Dates: start: 20100523

REACTIONS (18)
  - OXYGEN SATURATION DECREASED [None]
  - DYSPNOEA [None]
  - STILLBIRTH [None]
  - PLEURAL EFFUSION [None]
  - FLUID OVERLOAD [None]
  - CARDIOMYOPATHY [None]
  - PATHOGEN RESISTANCE [None]
  - TROPONIN INCREASED [None]
  - WHITE BLOOD CELL COUNT INCREASED [None]
  - BLOOD PRESSURE DECREASED [None]
  - TACHYCARDIA [None]
  - CHEST PAIN [None]
  - DRUG EXPOSURE DURING PREGNANCY [None]
  - PREMATURE LABOUR [None]
  - BRAIN NATRIURETIC PEPTIDE INCREASED [None]
  - SEPSIS [None]
  - STREPTOCOCCUS TEST POSITIVE [None]
  - ESCHERICHIA TEST POSITIVE [None]
